FAERS Safety Report 4564184-7 (Version None)
Quarter: 2005Q1

REPORT INFORMATION
  Report Type: 
  Country: None (occurrence: None)
  Receive Date: 20050126
  Receipt Date: 20050110
  Transmission Date: 20050727
  Serious: Yes (Hospitalization)
  Sender: FDA-Public Use
  Company Number: 2005PL000001

PATIENT
  Age: 48 Year
  Sex: Female

DRUGS (1)
  1. AZATHIROPRINE (AZATHIOPRINE) [Suspect]
     Indication: ENCEPHALITIS
     Dosage: 125 MG; DAILY; ORAL
     Route: 048

REACTIONS (4)
  - APLASTIC ANAEMIA [None]
  - NEUTROPENIC SEPSIS [None]
  - PANCYTOPENIA [None]
  - STAPHYLOCOCCAL IMPETIGO [None]
